FAERS Safety Report 5819349-0 (Version None)
Quarter: 2008Q3

REPORT INFORMATION
  Report Type: 
  Country: None (occurrence: None)
  Receive Date: 20080723
  Receipt Date: 20080225
  Transmission Date: 20090109
  Serious: No
  Sender: FDA-Public Use
  Company Number: US-BAYER-200810903BCC

PATIENT
  Age: 59 Year
  Sex: Male
  Weight: 82 kg

DRUGS (2)
  1. ALEVE (CAPLET) [Suspect]
     Indication: ROTATOR CUFF SYNDROME
     Dosage: UNIT DOSE: 220 MG
     Route: 048
     Dates: start: 20071125, end: 20080224
  2. FLOMAX [Concomitant]

REACTIONS (1)
  - MUSCLE TWITCHING [None]
